FAERS Safety Report 8960809 (Version 1)
Quarter: 2012Q4

REPORT INFORMATION
  Report Type: Spontaneous
  Country: US (occurrence: None)
  Receive Date: 20121211
  Receipt Date: 20121211
  Transmission Date: 20130627
  Serious: Yes (Other)
  Sender: FDA-Public Use
  Company Number: None

PATIENT
  Age: 26 Year
  Sex: Female
  Weight: 86.18 kg

DRUGS (1)
  1. MIRENA IUD [Suspect]
     Indication: BIRTH CONTROL
     Dates: start: 20090823, end: 20100415

REACTIONS (7)
  - Discomfort [None]
  - Menstrual disorder [None]
  - Mood swings [None]
  - Pregnancy with contraceptive device [None]
  - Device dislocation [None]
  - Post procedural haemorrhage [None]
  - Exposure during pregnancy [None]
